FAERS Safety Report 11356741 (Version 1)
Quarter: 2015Q3

REPORT INFORMATION
  Report Type: Spontaneous
  Country: US (occurrence: US)
  Receive Date: 20150803
  Receipt Date: 20150803
  Transmission Date: 20151125
  Serious: No
  Sender: FDA-Public Use
  Company Number: US-ELI_LILLY_AND_COMPANY-US201209004232

PATIENT
  Sex: Female

DRUGS (1)
  1. STRATTERA [Suspect]
     Active Substance: ATOMOXETINE HYDROCHLORIDE
     Indication: DEPRESSION
     Dosage: 80 MG, QD
     Route: 048
     Dates: start: 20120509, end: 201207

REACTIONS (2)
  - Nail discolouration [Recovered/Resolved]
  - Off label use [Recovered/Resolved]
